FAERS Safety Report 8163021-1 (Version None)
Quarter: 2012Q1

REPORT INFORMATION
  Report Type: 
  Country: None (occurrence: None)
  Receive Date: 20120224
  Receipt Date: 20120217
  Transmission Date: 20120608
  Serious: Yes (Life-Threatening, Hospitalization, Disabling)
  Sender: FDA-Public Use
  Company Number: US-BAYER-2011-064233

PATIENT
  Age: 26 Year
  Sex: Female
  Weight: 63.039 kg

DRUGS (6)
  1. ZITHROMAX [Concomitant]
     Dosage: 250 MG, UNK
     Route: 048
     Dates: start: 20050803
  2. EXCEDRIN [CAFFEINE,PARACETAMOL] [Concomitant]
  3. IBUPROFEN [Concomitant]
     Dosage: 800 MG, UNK
     Route: 048
     Dates: start: 20050803
  4. PREDNISONE [Concomitant]
     Dosage: 20 MG, UNK
     Route: 048
     Dates: start: 20050621
  5. YASMIN [Suspect]
     Indication: CONTRACEPTION
     Dosage: UNK
     Dates: start: 20050201, end: 20050801
  6. MOTRIN [Concomitant]
     Dosage: UNK
     Route: 048
     Dates: start: 20050801

REACTIONS (7)
  - ANXIETY [None]
  - EMOTIONAL DISTRESS [None]
  - PULMONARY EMBOLISM [None]
  - INJURY [None]
  - PAIN [None]
  - THROMBOSIS [None]
  - ANHEDONIA [None]
